FAERS Safety Report 25470832 (Version 2)
Quarter: 2025Q3

REPORT INFORMATION
  Report Type: Report from Study
  Country: CA (occurrence: CA)
  Receive Date: 20250624
  Receipt Date: 20250819
  Transmission Date: 20251021
  Serious: Yes (Other)
  Sender: ROCHE
  Company Number: CA-002147023-NVSC2025CA098713

PATIENT
  Age: 74 Year
  Sex: Male

DRUGS (1)
  1. XOLAIR [Suspect]
     Active Substance: OMALIZUMAB
     Indication: Chronic spontaneous urticaria
     Dosage: 300 MG, 4 WEEKS
     Route: 058
     Dates: start: 20250521

REACTIONS (3)
  - Angioedema [Unknown]
  - Oropharyngeal pain [Unknown]
  - Urticaria [Unknown]

NARRATIVE: CASE EVENT DATE: 20250525
